FAERS Safety Report 24523776 (Version 1)
Quarter: 2024Q4

REPORT INFORMATION
  Report Type: Spontaneous
  Country: US (occurrence: US)
  Receive Date: 20241018
  Receipt Date: 20241018
  Transmission Date: 20250114
  Serious: No
  Sender: PFIZER
  Company Number: US-PFIZER INC-PV202400134891

PATIENT
  Age: 83 Year
  Sex: Female
  Weight: 90.4 kg

DRUGS (1)
  1. EXEMESTANE [Suspect]
     Active Substance: EXEMESTANE
     Indication: Breast cancer metastatic
     Dosage: 25 MG, DAILY (1 TABS, ORAL, DAILY, 90 TABS, 3 REFILL(S)
     Route: 048
     Dates: start: 2020

REACTIONS (1)
  - Hot flush [Unknown]
